FAERS Safety Report 5897964-6 (Version None)
Quarter: 2008Q3

REPORT INFORMATION
  Report Type: 
  Country: None (occurrence: None)
  Receive Date: 20080925
  Receipt Date: 20080922
  Transmission Date: 20090109
  Serious: Yes (Hospitalization, Other)
  Sender: FDA-Public Use
  Company Number: B0537492A

PATIENT
  Age: 22 Year
  Sex: Female
  Weight: 52 kg

DRUGS (6)
  1. WELLBUTRIN XL [Suspect]
     Indication: DRUG USE FOR UNKNOWN INDICATION
     Dosage: 300MG PER DAY
     Route: 065
     Dates: start: 20080609, end: 20080910
  2. BUPROPION HCL [Suspect]
     Indication: DRUG USE FOR UNKNOWN INDICATION
     Dosage: 150MG PER DAY
     Route: 048
     Dates: start: 20080414, end: 20080601
  3. BUPROPION HCL [Suspect]
     Dosage: 225MG PER DAY
     Route: 048
     Dates: start: 20080602, end: 20080608
  4. INDERAL [Concomitant]
     Indication: DRUG USE FOR UNKNOWN INDICATION
     Route: 048
     Dates: start: 20080630, end: 20080910
  5. ETIZOLAM [Concomitant]
     Route: 048
     Dates: start: 20080414, end: 20080910
  6. ITOPRIDE [Concomitant]
     Dosage: 100MG PER DAY
     Route: 048
     Dates: start: 20080414, end: 20080506

REACTIONS (3)
  - AURA [None]
  - GRAND MAL CONVULSION [None]
  - POSTICTAL STATE [None]
